FAERS Safety Report 15652895 (Version 1)
Quarter: 2018Q4

REPORT INFORMATION
  Report Type: Spontaneous
  Country: FR (occurrence: FR)
  Receive Date: 20181123
  Receipt Date: 20181123
  Transmission Date: 20190205
  Serious: Yes (Life-Threatening, Hospitalization)
  Sender: FDA-Public Use
  Company Number: PHHY2018FR162768

PATIENT
  Age: 47 Year
  Sex: Male

DRUGS (22)
  1. LEVETIRACETAM. [Suspect]
     Active Substance: LEVETIRACETAM
     Indication: PRODUCT USED FOR UNKNOWN INDICATION
     Dosage: 500 MG, QD
     Route: 042
     Dates: start: 20120318, end: 20120406
  2. VANCOMYCIN [Concomitant]
     Active Substance: VANCOMYCIN
     Indication: INFECTION
     Dosage: 2 G, QD
     Route: 065
     Dates: start: 20120318, end: 20120321
  3. IMIPENEM/CILASTATINE [Concomitant]
     Active Substance: CILASTATIN SODIUM\IMIPENEM
     Indication: INFECTION
     Dosage: 500 MG, QD
     Route: 065
     Dates: start: 20120318, end: 20120321
  4. CLAFORAN [Suspect]
     Active Substance: CEFOTAXIME SODIUM
     Indication: DEVICE RELATED SEPSIS
     Dosage: 3 G, Q4H
     Route: 042
     Dates: start: 20120321, end: 20120408
  5. DIPRIVAN [Concomitant]
     Active Substance: PROPOFOL
     Indication: PRODUCT USED FOR UNKNOWN INDICATION
     Dosage: UNK
     Route: 065
     Dates: start: 20120302, end: 20120308
  6. LOVENOX [Concomitant]
     Active Substance: ENOXAPARIN SODIUM
     Indication: PRODUCT USED FOR UNKNOWN INDICATION
     Dosage: 4 ML, QD
     Route: 065
     Dates: start: 20120326
  7. PARACETAMOL [Concomitant]
     Active Substance: ACETAMINOPHEN
     Indication: PRODUCT USED FOR UNKNOWN INDICATION
     Dosage: UNK
     Route: 065
  8. CATAPRESSAN [Concomitant]
     Active Substance: CLONIDINE
     Indication: HYPERTENSION
     Dosage: UNK
     Route: 065
     Dates: start: 20120302, end: 20120308
  9. SUFENTA [Concomitant]
     Active Substance: SUFENTANIL CITRATE
     Indication: PRODUCT USED FOR UNKNOWN INDICATION
     Dosage: UNK
     Route: 065
     Dates: start: 20120302, end: 20120307
  10. MIDAZOLAM [Concomitant]
     Active Substance: MIDAZOLAM HYDROCHLORIDE
     Indication: PRODUCT USED FOR UNKNOWN INDICATION
     Dosage: UNK
     Route: 065
     Dates: start: 20120302, end: 20120311
  11. EUPRESSYL [Concomitant]
     Active Substance: URAPIDIL
     Dosage: 60 MG, QD
     Route: 065
  12. TRIATEC (RAMIPRIL) [Suspect]
     Active Substance: RAMIPRIL
     Indication: HYPERTENSION
     Dosage: 2.5 MG, QD
     Route: 048
     Dates: start: 20120308, end: 20120409
  13. LASILIX [Concomitant]
     Active Substance: FUROSEMIDE
     Indication: PRODUCT USED FOR UNKNOWN INDICATION
     Dosage: UNK
     Route: 065
  14. EUPRESSYL [Concomitant]
     Active Substance: URAPIDIL
     Dosage: 90 MG, QD
     Route: 065
     Dates: start: 20120410, end: 20120415
  15. INEXIUM [Concomitant]
     Active Substance: ESOMEPRAZOLE
     Indication: PRODUCT USED FOR UNKNOWN INDICATION
     Dosage: UNK
     Route: 065
     Dates: start: 20120302, end: 20120322
  16. LOXEN [NICARDIPINE HYDROCHLORIDE] [Concomitant]
     Active Substance: NICARDIPINE HYDROCHLORIDE
     Indication: HYPERTENSION
     Dosage: 50 MG, QD
     Route: 048
     Dates: start: 20120302
  17. AUGMENTIN [Concomitant]
     Active Substance: AMOXICILLIN\CLAVULANATE POTASSIUM
     Indication: PRODUCT USED FOR UNKNOWN INDICATION
     Dosage: UNK
     Route: 065
     Dates: start: 20120306, end: 20120311
  18. EUPRESSYL [Concomitant]
     Active Substance: URAPIDIL
     Dosage: 60 MG, QD
     Route: 065
     Dates: start: 20120302, end: 20120307
  19. ATENOLOL. [Concomitant]
     Active Substance: ATENOLOL
     Indication: HYPERTENSION
     Dosage: 50 MG, QD
     Route: 048
     Dates: start: 20120313
  20. EUPRESSYL [Concomitant]
     Active Substance: URAPIDIL
     Indication: HYPERTENSION
     Dosage: 90 MG, QD
     Route: 065
     Dates: start: 20120319
  21. EUPRESSYL [Concomitant]
     Active Substance: URAPIDIL
     Dosage: 90 MG, QD
     Route: 065
     Dates: start: 20120326
  22. HYDROCHLOROTHIAZIDE. [Suspect]
     Active Substance: HYDROCHLOROTHIAZIDE
     Indication: HYPERTENSION
     Dosage: 25 MG, QD
     Route: 048
     Dates: start: 20120320, end: 20120409

REACTIONS (3)
  - Leukopenia [Recovered/Resolved]
  - Agranulocytosis [Recovered/Resolved]
  - Neutropenia [Recovered/Resolved]

NARRATIVE: CASE EVENT DATE: 20120402
